FAERS Safety Report 21788310 (Version 1)
Quarter: 2022Q4

REPORT INFORMATION
  Report Type: Report from Study
  Country: KR (occurrence: KR)
  Receive Date: 20221228
  Receipt Date: 20221228
  Transmission Date: 20230113
  Serious: Yes (Hospitalization, Other)
  Sender: FDA-Public Use
  Company Number: KR-MYLANLABS-2022M1146217

PATIENT
  Age: 71 Year
  Sex: Female
  Weight: 63 kg

DRUGS (14)
  1. TRASTUZUMAB [Suspect]
     Active Substance: TRASTUZUMAB
     Indication: Breast cancer
     Dosage: 600 MILLIGRAM, Q3W
     Route: 058
     Dates: start: 20200820
  2. DEXAMETHASONE [Suspect]
     Active Substance: DEXAMETHASONE
     Indication: Breast cancer
     Dosage: 1 MILLIGRAM, QD
     Route: 042
     Dates: start: 20200820, end: 20211117
  3. DIMENHYDRINATE [Concomitant]
     Active Substance: DIMENHYDRINATE
     Dosage: 50 MILLIGRAM, QD
     Route: 048
     Dates: start: 20200820
  4. MEGESTROL ACETATE [Concomitant]
     Active Substance: MEGESTROL ACETATE
     Dosage: 20 MILLILITER, QD
     Route: 048
     Dates: start: 20200828, end: 20200909
  5. METOCLOPRAMIDE [Concomitant]
     Active Substance: METOCLOPRAMIDE
     Dosage: 10 MILLIGRAM, QD
     Route: 048
     Dates: start: 20200820
  6. APIXABAN [Concomitant]
     Active Substance: APIXABAN
     Indication: Atrial fibrillation
     Dosage: 5 MILLIGRAM, QD
     Route: 048
     Dates: start: 20200908
  7. APIXABAN [Concomitant]
     Active Substance: APIXABAN
     Indication: Atrial flutter
  8. DIGOXIN [Concomitant]
     Active Substance: DIGOXIN
     Indication: Atrial fibrillation
     Dosage: 62.5 MILLIGRAM, QD
     Route: 048
     Dates: start: 20200908
  9. DIGOXIN [Concomitant]
     Active Substance: DIGOXIN
     Indication: Atrial flutter
  10. BISOPROLOL FUMARATE [Concomitant]
     Active Substance: BISOPROLOL FUMARATE
     Indication: Atrial fibrillation
     Dosage: 2.5 MILLIGRAM, QD
     Route: 048
     Dates: start: 20200908
  11. BISOPROLOL FUMARATE [Concomitant]
     Active Substance: BISOPROLOL FUMARATE
     Indication: Atrial flutter
  12. PANTOPRAZOLE SODIUM [Concomitant]
     Active Substance: PANTOPRAZOLE SODIUM
     Dosage: 40 MILLIGRAM, QD
     Route: 042
     Dates: start: 20201206, end: 20201214
  13. NEURONTIN [Concomitant]
     Active Substance: GABAPENTIN
     Indication: Mononeuropathy
     Dosage: 300 MILLIGRAM, QD
     Route: 048
     Dates: start: 20201213
  14. PYRIDOXINE HYDROCHLORIDE [Concomitant]
     Active Substance: PYRIDOXINE HYDROCHLORIDE
     Dosage: UNK
     Route: 065

REACTIONS (11)
  - Neutropenia [Recovered/Resolved]
  - Pneumonia [Recovered/Resolved]
  - Gastrooesophageal reflux disease [Recovering/Resolving]
  - Aspartate aminotransferase increased [Recovering/Resolving]
  - Alanine aminotransferase increased [Recovering/Resolving]
  - Hypocalcaemia [Recovered/Resolved]
  - Pruritus [Recovering/Resolving]
  - Diarrhoea [Recovered/Resolved]
  - Nausea [Recovering/Resolving]
  - Paraesthesia [Recovering/Resolving]
  - Rhinitis allergic [Recovering/Resolving]

NARRATIVE: CASE EVENT DATE: 20200826
